FAERS Safety Report 21843935 (Version 2)
Quarter: 2023Q1

REPORT INFORMATION
  Report Type: Spontaneous
  Country: JP (occurrence: JP)
  Receive Date: 20230110
  Receipt Date: 20230220
  Transmission Date: 20230417
  Serious: Yes (Death, Life-Threatening, Other)
  Sender: FDA-Public Use
  Company Number: JP-TEVA-2023-JP-2844614

PATIENT
  Age: 70 Year
  Sex: Male

DRUGS (6)
  1. ENTECAVIR [Suspect]
     Active Substance: ENTECAVIR
     Indication: Hepatitis B reactivation
     Dosage: .5 MILLIGRAM DAILY; ONCE A DAY
     Route: 065
  2. PREDNISOLONE [Suspect]
     Active Substance: PREDNISOLONE
     Indication: Chemotherapy
     Route: 065
  3. RITUXIMAB [Suspect]
     Active Substance: RITUXIMAB
     Indication: Chemotherapy
     Route: 065
  4. CYCLOPHOSPHAMIDE [Suspect]
     Active Substance: CYCLOPHOSPHAMIDE
     Indication: Chemotherapy
     Route: 065
  5. ONCOVIN [Suspect]
     Active Substance: VINCRISTINE SULFATE
     Indication: Chemotherapy
     Route: 065
  6. EPIRUBICIN [Suspect]
     Active Substance: EPIRUBICIN
     Indication: Chemotherapy
     Route: 065

REACTIONS (4)
  - Hepatitis B reactivation [Fatal]
  - Liver disorder [Fatal]
  - Drug ineffective [Unknown]
  - Hepatitis acute [Unknown]
